FAERS Safety Report 5511950-7 (Version None)
Quarter: 2007Q4

REPORT INFORMATION
  Report Type: 
  Country: None (occurrence: None)
  Receive Date: 20071109
  Receipt Date: 20071031
  Transmission Date: 20080405
  Serious: Yes (Other)
  Sender: FDA-Public Use
  Company Number: GB-PFIZER INC-2007092439

PATIENT
  Sex: Male

DRUGS (1)
  1. DETRUSITOL XL [Suspect]
     Route: 048

REACTIONS (4)
  - CONSTIPATION [None]
  - DYSPHAGIA [None]
  - FAECAL INCONTINENCE [None]
  - OESOPHAGEAL DISORDER [None]
